FAERS Safety Report 14663362 (Version 1)
Quarter: 2018Q1

REPORT INFORMATION
  Report Type: Spontaneous
  Country: US (occurrence: US)
  Receive Date: 20180319
  Receipt Date: 20180319
  Transmission Date: 20180509
  Serious: Yes (Hospitalization)
  Sender: FDA-Public Use
  Company Number: None

PATIENT
  Age: 61 Year
  Sex: Female

DRUGS (1)
  1. IBRANCE [Suspect]
     Active Substance: PALBOCICLIB
     Route: 048
     Dates: start: 20180125

REACTIONS (8)
  - Arthralgia [None]
  - Burning sensation [None]
  - Fatigue [None]
  - Cystitis [None]
  - Restless legs syndrome [None]
  - Decreased appetite [None]
  - Muscle spasms [None]
  - Muscle tightness [None]

NARRATIVE: CASE EVENT DATE: 20180125
